FAERS Safety Report 12851523 (Version 1)
Quarter: 2016Q4

REPORT INFORMATION
  Report Type: Spontaneous
  Country: US (occurrence: US)
  Receive Date: 20161016
  Receipt Date: 20161016
  Transmission Date: 20170207
  Serious: Yes (Other)
  Sender: FDA-Public Use
  Company Number: US-LUNDBECK-DKLU2020942

PATIENT
  Sex: Female

DRUGS (1)
  1. NORTHERA [Suspect]
     Active Substance: DROXIDOPA
     Indication: PRODUCT USED FOR UNKNOWN INDICATION
     Route: 065

REACTIONS (9)
  - Vision blurred [Unknown]
  - Condition aggravated [Unknown]
  - Fatigue [Unknown]
  - Impaired gastric emptying [Unknown]
  - Constipation [Unknown]
  - Dizziness [Unknown]
  - Anxiety [Unknown]
  - Ataxia [Unknown]
  - Exercise tolerance decreased [Unknown]
